FAERS Safety Report 18744226 (Version 1)
Quarter: 2021Q1

REPORT INFORMATION
  Report Type: Report from Study
  Country: TW (occurrence: TW)
  Receive Date: 20210114
  Receipt Date: 20210114
  Transmission Date: 20210419
  Serious: Yes (Other)
  Sender: FDA-Public Use
  Company Number: TW-ACCORD-214620

PATIENT

DRUGS (3)
  1. TEGAFUR/GIMERACIL/OTERACIL POTASSIUM [Suspect]
     Active Substance: GIMERACIL\OTERACIL\TEGAFUR
     Indication: PANCREATIC CARCINOMA METASTATIC
     Dosage: 80?120 MG/DAY, BASED ON BODY SURFACE AREA FROM DAYS 1 TO 7
     Route: 048
  2. GEMCITABINE/GEMCITABINE HYDROCHLORIDE [Suspect]
     Active Substance: GEMCITABINE\GEMCITABINE HYDROCHLORIDE
     Indication: PANCREATIC CARCINOMA METASTATIC
     Dosage: AT A RATE OF 10 MG/M2 /MIN ON DAY 1
     Route: 042
  3. FOLINIC ACID [Suspect]
     Active Substance: LEUCOVORIN
     Indication: PANCREATIC CARCINOMA METASTATIC
     Dosage: FROM DAYS 1 TO 7
     Route: 048

REACTIONS (1)
  - Pulmonary embolism [Unknown]
